FAERS Safety Report 6286773-4 (Version None)
Quarter: 2009Q3

REPORT INFORMATION
  Report Type: 
  Country: None (occurrence: None)
  Receive Date: 20090728
  Receipt Date: 20090716
  Transmission Date: 20100115
  Serious: Yes (Other)
  Sender: FDA-Public Use
  Company Number: JP-PFIZER INC-2009235160

PATIENT
  Age: 88 Year

DRUGS (4)
  1. ZYVOX [Suspect]
     Indication: STAPHYLOCOCCAL INFECTION
     Dosage: UNK
     Route: 042
  2. MEROPEN [Concomitant]
     Indication: LUNG ABSCESS
     Route: 042
  3. POTACOL-R [Concomitant]
     Route: 042
  4. OMEPRAL [Concomitant]
     Indication: GASTRIC ULCER
     Route: 048

REACTIONS (1)
  - HAEMATURIA [None]
